FAERS Safety Report 23349681 (Version 1)
Quarter: 2023Q4

REPORT INFORMATION
  Report Type: Spontaneous
  Country: US (occurrence: US)
  Receive Date: 20231229
  Receipt Date: 20231229
  Transmission Date: 20240109
  Serious: No
  Sender: FDA-Public Use
  Company Number: US-SA-SAC20231223000180

PATIENT
  Sex: Female

DRUGS (12)
  1. DUPIXENT [Suspect]
     Active Substance: DUPILUMAB
     Indication: Dermatitis allergic
     Dosage: 300 MG, QOW
     Route: 058
     Dates: start: 20220929
  2. ASPIRIN [Concomitant]
     Active Substance: ASPIRIN
  3. DICLOFENAC [Concomitant]
     Active Substance: DICLOFENAC
  4. FAMOTIDINE [Concomitant]
     Active Substance: FAMOTIDINE
  5. FLUOXETINE [Concomitant]
     Active Substance: FLUOXETINE HYDROCHLORIDE
  6. MIRTAZAPINE [Concomitant]
     Active Substance: MIRTAZAPINE
  7. TACROLIMUS [Concomitant]
     Active Substance: TACROLIMUS
  8. VITAMIN B6 [Concomitant]
     Active Substance: PYRIDOXINE HYDROCHLORIDE
  9. TRIAMCINOLONE [Concomitant]
     Active Substance: TRIAMCINOLONE
  10. HYDROCORT [HYDROCORTISONE] [Concomitant]
  11. HYDROXYZINE HYDROCHLORIDE [Concomitant]
     Active Substance: HYDROXYZINE HYDROCHLORIDE
  12. FOLIC ACID\IRON\MINERALS\VITAMINS [Concomitant]
     Active Substance: FOLIC ACID\IRON\MINERALS\VITAMINS

REACTIONS (3)
  - Sleep disorder due to a general medical condition [Unknown]
  - Eye irritation [Unknown]
  - Product dose omission in error [Unknown]
